FAERS Safety Report 17998596 (Version 2)
Quarter: 2021Q2

REPORT INFORMATION
  Report Type: Spontaneous
  Country: US (occurrence: US)
  Receive Date: 20200709
  Receipt Date: 20210629
  Transmission Date: 20210717
  Serious: No
  Sender: FDA-Public Use
  Company Number: US-TEVA-2020-US-1798027

PATIENT
  Age: 69 Year
  Sex: Female

DRUGS (1)
  1. NIFEDIPINE. [Suspect]
     Active Substance: NIFEDIPINE
     Dosage: FORM OF ADMIN: EXTENDED RELEASE TABLET.
     Route: 065

REACTIONS (4)
  - Headache [Unknown]
  - Dyspnoea [Unknown]
  - Palpitations [Unknown]
  - Hypersensitivity [Unknown]
